FAERS Safety Report 14636693 (Version 1)
Quarter: 2018Q1

REPORT INFORMATION
  Report Type: Spontaneous
  Country: FR (occurrence: FR)
  Receive Date: 20180314
  Receipt Date: 20180314
  Transmission Date: 20180509
  Serious: Yes (Hospitalization)
  Sender: FDA-Public Use
  Company Number: FR-TEVA-2018-FR-868355

PATIENT
  Age: 73 Year
  Sex: Female
  Weight: 57 kg

DRUGS (4)
  1. NEULASTA 6 MG, SOLUTION INJECTABLE [Concomitant]
     Indication: NEUTROPENIA
     Route: 058
  2. DOXORUBICINE (CHLORHYDRATE DE) [Suspect]
     Active Substance: DOXORUBICIN
     Indication: LEIOMYOSARCOMA
     Route: 042
  3. EPOETIN ALFA [Concomitant]
     Active Substance: ERYTHROPOIETIN
     Indication: ANAEMIA
     Route: 058
  4. YONDELIS [Suspect]
     Active Substance: TRABECTEDIN
     Indication: LEIOMYOSARCOMA
     Route: 042

REACTIONS (1)
  - Acute myeloid leukaemia [Not Recovered/Not Resolved]
